FAERS Safety Report 18170038 (Version 1)
Quarter: 2020Q3

REPORT INFORMATION
  Report Type: Spontaneous
  Country: NL (occurrence: NL)
  Receive Date: 20200819
  Receipt Date: 20200819
  Transmission Date: 20201103
  Serious: Yes (Death, Other)
  Sender: FDA-Public Use
  Company Number: NL-009507513-2008NLD008853

PATIENT
  Sex: Male

DRUGS (1)
  1. ZOLINZA [Suspect]
     Active Substance: VORINOSTAT
     Indication: SALIVARY GLAND CANCER
     Dosage: UNK

REACTIONS (2)
  - Salivary gland cancer [Fatal]
  - Product use in unapproved indication [Unknown]
